FAERS Safety Report 4911639-9 (Version None)
Quarter: 2006Q1

REPORT INFORMATION
  Report Type: 
  Country: None (occurrence: None)
  Receive Date: 20060213
  Receipt Date: 20060203
  Transmission Date: 20060701
  Serious: Yes (Death, Hospitalization, Other)
  Sender: FDA-Public Use
  Company Number: HQWYE686106FEB06

PATIENT
  Age: 61 Year
  Sex: Female

DRUGS (1)
  1. PREMARIN [Suspect]

REACTIONS (2)
  - COLOSTOMY [None]
  - OVARIAN CANCER METASTATIC [None]
